APPROVED DRUG PRODUCT: ZEMPLAR
Active Ingredient: PARICALCITOL
Strength: 4MCG **Federal Register determination that product was not discontinued or withdrawn for safety or effectiveness reasons**
Dosage Form/Route: CAPSULE;ORAL
Application: N021606 | Product #003
Applicant: ABBVIE INC
Approved: May 26, 2005 | RLD: Yes | RS: No | Type: DISCN